FAERS Safety Report 17642314 (Version 2)
Quarter: 2020Q2

REPORT INFORMATION
  Report Type: Report from Study
  Country: DE (occurrence: DE)
  Receive Date: 20200408
  Receipt Date: 20200612
  Transmission Date: 20200713
  Serious: Yes (Hospitalization)
  Sender: FDA-Public Use
  Company Number: DE-ROCHE-2573574

PATIENT
  Age: 54 Year
  Sex: Female
  Weight: 90 kg

DRUGS (18)
  1. MARIENDISTEL [SILYBUM MARIANUM EXTRACT] [Concomitant]
     Route: 048
  2. FAMPYRA [Concomitant]
     Active Substance: DALFAMPRIDINE
     Route: 048
     Dates: start: 20120312
  3. OCRELIZUMAB. [Suspect]
     Active Substance: OCRELIZUMAB
     Indication: MULTIPLE SCLEROSIS
     Route: 042
     Dates: start: 20190114, end: 20190128
  4. BACLOFEN. [Concomitant]
     Active Substance: BACLOFEN
     Indication: MUSCLE SPASTICITY
     Route: 048
  5. AMLODIPINE [Concomitant]
     Active Substance: AMLODIPINE BESYLATE
     Indication: HYPERTENSION
     Route: 048
  6. DEKRISTOL [Concomitant]
     Active Substance: CHOLECALCIFEROL
     Indication: PROPHYLAXIS
     Route: 048
  7. METHYLPREDNISOLON [METHYLPREDNISOLONE] [Concomitant]
     Active Substance: METHYLPREDNISOLONE
     Route: 042
     Dates: start: 20200108, end: 20200110
  8. OCRELIZUMAB. [Suspect]
     Active Substance: OCRELIZUMAB
     Route: 042
     Dates: start: 20190911
  9. ESCITALOPRAM [Concomitant]
     Active Substance: ESCITALOPRAM OXALATE
     Indication: DEPRESSION
     Route: 048
  10. VENLAFAXIN [Concomitant]
     Active Substance: VENLAFAXINE HYDROCHLORIDE
     Indication: DEPRESSION
     Route: 048
  11. RITUXIMAB. [Concomitant]
     Active Substance: RITUXIMAB
     Route: 065
     Dates: start: 2012
  12. XIGDUO XR [Concomitant]
     Active Substance: DAPAGLIFLOZIN PROPANEDIOL\METFORMIN HYDROCHLORIDE
     Indication: DIABETES MELLITUS
     Route: 048
  13. METOPROLOL. [Concomitant]
     Active Substance: METOPROLOL
     Route: 048
  14. APIDRA [Concomitant]
     Active Substance: INSULIN GLULISINE
     Indication: DIABETES MELLITUS
     Dosage: DEFINITION OF THE INTERVAL: AS REQUIRED
     Route: 058
  15. TOLPERISONE [Concomitant]
     Active Substance: TOLPERISONE
     Indication: MUSCLE SPASTICITY
     Route: 048
  16. ENAHEXAL COMP [Concomitant]
     Active Substance: ENALAPRIL MALEATE\HYDROCHLOROTHIAZIDE
     Indication: HYPERTENSION
     Route: 048
  17. LANTUS [Concomitant]
     Active Substance: INSULIN GLARGINE
     Indication: DIABETES MELLITUS
     Dosage: DEFINITION OF THE INTERVAL: AS REQUIRED
     Route: 058
  18. MITOXANTRON [MITOXANTRONE] [Concomitant]
     Active Substance: MITOXANTRONE HYDROCHLORIDE
     Route: 065
     Dates: start: 2011

REACTIONS (2)
  - Discomfort [Unknown]
  - Urinary tract infection [Recovered/Resolved]

NARRATIVE: CASE EVENT DATE: 20191204
